FAERS Safety Report 6826869-9 (Version None)
Quarter: 2010Q3

REPORT INFORMATION
  Report Type: 
  Country: None (occurrence: None)
  Receive Date: 20100709
  Receipt Date: 20100629
  Transmission Date: 20110219
  Serious: Yes (Hospitalization)
  Sender: FDA-Public Use
  Company Number: DE-ROCHE-712453

PATIENT
  Sex: Male
  Weight: 88 kg

DRUGS (9)
  1. BEVACIZUMAB [Suspect]
     Indication: NON-SMALL CELL LUNG CANCER
     Dosage: DATE OF LAST DOSE PRIOR TO SAE:16 JUNE 2010
     Route: 042
     Dates: start: 20100616, end: 20100628
  2. PEMETREXED [Suspect]
     Indication: NON-SMALL CELL LUNG CANCER
     Dosage: DATE OF LAST DOSE PRIOR TO SAE :16 JUNE 2010
     Route: 042
     Dates: start: 20100616, end: 20100628
  3. CISPLATIN [Suspect]
     Indication: NON-SMALL CELL LUNG CANCER
     Dosage: DATE OF LAST DOSE PRIOR TO SAE :16 JUNE 2010
     Route: 042
     Dates: start: 20100616, end: 20100628
  4. ASPIRIN [Concomitant]
     Dates: start: 20100531
  5. CARMEN [Concomitant]
     Dates: start: 20050101
  6. THEOPHYLLINE [Concomitant]
     Dates: start: 20100401
  7. NEBIVOLOL [Concomitant]
     Dates: start: 20070601
  8. METAMIZOL [Concomitant]
     Dosage: TOTAL DAILY  DOSE:90GGF
     Dates: start: 20100401
  9. MCP [Concomitant]
     Dosage: TOTAL DAILY DOSE:30GGF AS NEEDED

REACTIONS (1)
  - GENERAL PHYSICAL HEALTH DETERIORATION [None]
